FAERS Safety Report 10159837 (Version 1)
Quarter: 2014Q2

REPORT INFORMATION
  Report Type: Spontaneous
  Country: MX (occurrence: None)
  Receive Date: 20140506
  Receipt Date: 20140506
  Transmission Date: 20141212
  Serious: Yes (Hospitalization)
  Sender: FDA-Public Use
  Company Number: FK201401587

PATIENT
  Age: 17 Year
  Sex: Male

DRUGS (2)
  1. DEXAMETHASONE [Suspect]
     Indication: DERMATOSIS
     Dosage: EVERY 3RD DAY
     Route: 030
  2. PREDNISONE (PREDNISONE) [Suspect]
     Indication: DERMATOSIS
     Route: 048

REACTIONS (16)
  - Acne fulminans [None]
  - Steroid withdrawal syndrome [None]
  - Cushing^s syndrome [None]
  - Rash papular [None]
  - Rash pustular [None]
  - Myalgia [None]
  - Arthralgia [None]
  - Pain [None]
  - Purulence [None]
  - Pyrexia [None]
  - Pseudocyst [None]
  - Scab [None]
  - Ulcer [None]
  - Necrosis [None]
  - Leukocytosis [None]
  - Neutrophilia [None]
